FAERS Safety Report 25358654 (Version 1)
Quarter: 2025Q2

REPORT INFORMATION
  Report Type: Spontaneous
  Country: US (occurrence: US)
  Receive Date: 20250526
  Receipt Date: 20250526
  Transmission Date: 20250717
  Serious: No
  Sender: ELI LILLY AND COMPANY
  Company Number: US-ELI_LILLY_AND_COMPANY-US202505012272

PATIENT
  Age: 59 Year
  Sex: Male

DRUGS (2)
  1. TRULICITY [Suspect]
     Active Substance: DULAGLUTIDE
     Indication: Diabetes mellitus
     Route: 065
     Dates: start: 202411
  2. TRULICITY [Suspect]
     Active Substance: DULAGLUTIDE
     Route: 065

REACTIONS (2)
  - Injection site pain [Unknown]
  - Incorrect dose administered [Unknown]
